FAERS Safety Report 10154989 (Version 1)
Quarter: 2014Q2

REPORT INFORMATION
  Report Type: Spontaneous
  Country: US (occurrence: US)
  Receive Date: 20140506
  Receipt Date: 20140506
  Transmission Date: 20141212
  Serious: No
  Sender: FDA-Public Use
  Company Number: US-BAYER-2014-066425

PATIENT
  Age: 91 Year
  Sex: Female
  Weight: 63 kg

DRUGS (5)
  1. ALEVE CAPLET [Suspect]
     Indication: ARTHRALGIA
     Dosage: 2 OR 3 DF, QD
     Route: 048
     Dates: start: 201404
  2. ALEVE CAPLET [Suspect]
     Indication: ARTHRALGIA
     Dosage: SOMETIMES 3 DF AT ONCE
     Route: 048
     Dates: start: 201404
  3. DIPHENHYDRAMINE [Concomitant]
  4. SYNTHROID [Concomitant]
  5. MELATONIN [Concomitant]

REACTIONS (3)
  - Drug ineffective [None]
  - Inappropriate schedule of drug administration [None]
  - Incorrect drug administration duration [None]
